FAERS Safety Report 9288069 (Version 1)
Quarter: 2013Q2

REPORT INFORMATION
  Report Type: Spontaneous
  Country: AU (occurrence: AU)
  Receive Date: 20130514
  Receipt Date: 20130514
  Transmission Date: 20140414
  Serious: Yes (Other)
  Sender: FDA-Public Use
  Company Number: AU-VERTEX PHARMACEUTICALS INC-2013-005985

PATIENT
  Age: 52 Year
  Sex: Female
  Weight: 53 kg

DRUGS (5)
  1. INCIVO [Suspect]
     Indication: HEPATITIS C
     Dosage: 750 MG, TID
     Route: 065
  2. PEGYLATED INTERFERON ALFA-2A [Suspect]
     Indication: HEPATITIS C
  3. RIBAVIRIN [Suspect]
     Indication: HEPATITIS C
  4. RIBAVIRIN [Suspect]
     Dosage: 1000 MG, QD
  5. THYROXINE [Concomitant]
     Dosage: 50 ?G, QD

REACTIONS (15)
  - Skin disorder [Unknown]
  - Depression [Unknown]
  - Neutropenia [Unknown]
  - Rash [Recovered/Resolved]
  - Anaemia [Unknown]
  - Skin discolouration [Not Recovered/Not Resolved]
  - Mucosal inflammation [Unknown]
  - Alopecia [Unknown]
  - Fatigue [Unknown]
  - Dyspnoea [Unknown]
  - Face oedema [Recovered/Resolved]
  - Thrombocytopenia [Unknown]
  - Pruritus [Recovered/Resolved]
  - Oedema peripheral [Recovered/Resolved]
  - Oral candidiasis [Unknown]
